FAERS Safety Report 9297897 (Version 1)
Quarter: 2013Q2

REPORT INFORMATION
  Report Type: Other
  Country: GB (occurrence: GB)
  Receive Date: 20130520
  Receipt Date: 20130520
  Transmission Date: 20140414
  Serious: Yes (Other)
  Sender: FDA-Public Use
  Company Number: GB-PURDUE-USA-2013-0102381

PATIENT
  Age: 26 Year
  Sex: Female

DRUGS (3)
  1. TRAMADOL (SIMILAR TO NDA 21-745) [Suspect]
     Indication: ABDOMINAL PAIN
     Dosage: 400 MG, DAILY
  2. FENTANYL [Suspect]
     Indication: ABDOMINAL PAIN
     Dosage: 150 MCG/HR, DAILY
  3. ORAMORPH [Suspect]
     Indication: ABDOMINAL PAIN
     Dosage: 100 MG, DAILY

REACTIONS (1)
  - Narcotic bowel syndrome [Recovered/Resolved]
